FAERS Safety Report 15126372 (Version 2)
Quarter: 2019Q1

REPORT INFORMATION
  Report Type: Spontaneous
  Country: US (occurrence: US)
  Receive Date: 20180710
  Receipt Date: 20190125
  Transmission Date: 20190417
  Serious: Yes (Hospitalization)
  Sender: FDA-Public Use
  Company Number: US-CELGENEUS-USA-20180700824

PATIENT
  Age: 68 Year
  Sex: Female

DRUGS (3)
  1. FT-2102 [Suspect]
     Active Substance: OLUTASIDENIB
     Dosage: 300 MILLIGRAM
     Route: 048
     Dates: start: 20180611, end: 20180612
  2. VIDAZA [Suspect]
     Active Substance: AZACITIDINE
     Indication: MYELODYSPLASTIC SYNDROME
     Route: 041
     Dates: start: 20180524
  3. FT-2102 [Suspect]
     Active Substance: OLUTASIDENIB
     Indication: MYELODYSPLASTIC SYNDROME
     Dosage: 300 MILLIGRAM
     Route: 048
     Dates: start: 20180524

REACTIONS (1)
  - Febrile neutropenia [Recovered/Resolved]

NARRATIVE: CASE EVENT DATE: 20180625
